FAERS Safety Report 4317739-9 (Version None)
Quarter: 2004Q1

REPORT INFORMATION
  Report Type: 
  Country: None (occurrence: None)
  Receive Date: 20040312
  Receipt Date: 20040302
  Transmission Date: 20041129
  Serious: Yes (Death, Life-Threatening)
  Sender: FDA-Public Use
  Company Number: CIP04000433

PATIENT
  Age: 34 Year
  Sex: Male

DRUGS (1)
  1. DANTRIUM [Suspect]
     Indication: MUSCLE SPASTICITY
     Dosage: ORAL
     Route: 048

REACTIONS (8)
  - EOSINOPHIL COUNT INCREASED [None]
  - HYDROTHORAX [None]
  - HYPOALBUMINAEMIA [None]
  - OEDEMA [None]
  - PLEURAL FIBROSIS [None]
  - PLEURISY [None]
  - PNEUMONIA [None]
  - RESPIRATORY FAILURE [None]
